FAERS Safety Report 16163079 (Version 1)
Quarter: 2019Q2

REPORT INFORMATION
  Report Type: Spontaneous
  Country: KR (occurrence: KR)
  Receive Date: 20190405
  Receipt Date: 20190405
  Transmission Date: 20190711
  Serious: Yes (Hospitalization)
  Sender: FDA-Public Use
  Company Number: KR-ABBVIE-19P-090-2731988-00

PATIENT
  Age: 44 Year
  Sex: Female

DRUGS (2)
  1. LEUPROLIDE ACETATE. [Suspect]
     Active Substance: LEUPROLIDE ACETATE
     Dosage: 3.75 MILLIGRAM, MONTHLY
     Route: 058
     Dates: start: 20170210, end: 20170210
  2. LEUPROLIDE ACETATE. [Suspect]
     Active Substance: LEUPROLIDE ACETATE
     Indication: UTERINE LEIOMYOMA
     Dosage: 3.75 MILLIGRAM, MONTHLY
     Route: 058
     Dates: start: 20170110, end: 20170110

REACTIONS (1)
  - Posterior reversible encephalopathy syndrome [Recovering/Resolving]
